FAERS Safety Report 7353148-6 (Version None)
Quarter: 2011Q1

REPORT INFORMATION
  Report Type: 
  Country: None (occurrence: None)
  Receive Date: 20110315
  Receipt Date: 20110301
  Transmission Date: 20110831
  Serious: Yes (Other)
  Sender: FDA-Public Use
  Company Number: FR-WATSON-2011-03042

PATIENT
  Age: 69 Year
  Sex: Female

DRUGS (4)
  1. SUFENTANIL CITRATE [Suspect]
     Indication: ANAESTHESIA
     Dosage: UNK
  2. ATRACURIUM BESYLATE [Suspect]
     Indication: ANAESTHESIA
     Dosage: UNK
  3. PROPOFOL [Suspect]
     Indication: ANAESTHESIA
     Dosage: UNK
  4. HYDROXYZINE HCL [Suspect]
     Indication: PREMEDICATION
     Dosage: UNK

REACTIONS (2)
  - DRUG RASH WITH EOSINOPHILIA AND SYSTEMIC SYMPTOMS [None]
  - MASTOCYTOSIS [None]
